FAERS Safety Report 16559277 (Version 1)
Quarter: 2019Q3

REPORT INFORMATION
  Report Type: Spontaneous
  Country: US (occurrence: US)
  Receive Date: 20190711
  Receipt Date: 20190711
  Transmission Date: 20191004
  Serious: Yes (Other)
  Sender: FDA-Public Use
  Company Number: US-SA-2019SA184834

PATIENT
  Age: 89 Year
  Sex: Male

DRUGS (1)
  1. AFLIBERCEPT [Suspect]
     Active Substance: AFLIBERCEPT
     Route: 031

REACTIONS (5)
  - Hypopyon [Unknown]
  - Visual impairment [Unknown]
  - Vitritis [Unknown]
  - Pain [Unknown]
  - Fibrin increased [Unknown]
